FAERS Safety Report 10217549 (Version 1)
Quarter: 2014Q2

REPORT INFORMATION
  Report Type: Report from Study
  Country: CH (occurrence: CH)
  Receive Date: 20140604
  Receipt Date: 20140604
  Transmission Date: 20141212
  Serious: Yes (Other)
  Sender: FDA-Public Use
  Company Number: CH-MYLANLABS-2014S1012604

PATIENT
  Age: 19 Year
  Sex: Female

DRUGS (4)
  1. MYCOPHENOLATE MOFETIL [Suspect]
     Indication: INTENTIONAL OVERDOSE
     Dosage: 25 000
     Route: 048
  2. MYCOPHENOLATE MOFETIL [Suspect]
     Indication: OFF LABEL USE
     Dosage: 25 000
     Route: 048
  3. ZOLPIDEM [Suspect]
     Indication: INTENTIONAL OVERDOSE
     Route: 065
  4. ZOLPIDEM [Suspect]
     Indication: OFF LABEL USE
     Route: 065

REACTIONS (3)
  - Suicide attempt [Unknown]
  - Intentional overdose [Unknown]
  - Somnolence [Unknown]
